FAERS Safety Report 8523024-1 (Version None)
Quarter: 2012Q3

REPORT INFORMATION
  Report Type: 
  Country: None (occurrence: None)
  Receive Date: 20120720
  Receipt Date: 20120710
  Transmission Date: 20120928
  Serious: Yes (Other)
  Sender: FDA-Public Use
  Company Number: AU-BRISTOL-MYERS SQUIBB COMPANY-16463267

PATIENT
  Age: 86 Year
  Sex: Male
  Weight: 74 kg

DRUGS (6)
  1. DOXEPIN [Concomitant]
  2. NIFEDIPINE [Concomitant]
  3. TAMSULOSIN HCL [Concomitant]
  4. ASPIRIN [Concomitant]
  5. IPILIMUMAB [Suspect]
     Indication: METASTATIC MALIGNANT MELANOMA
     Dosage: 02MAR12:2+3INF,WK1:50MGX1VIAL200MGX1,EXP:AUG13WK4:10FEB1250MGX1200MGX1WK703FEB1250MGX1200MGX1;3 INF
     Route: 042
     Dates: start: 20120120
  6. OMEPRAZOLE [Concomitant]

REACTIONS (2)
  - SUDDEN VISUAL LOSS [None]
  - NEOPLASM MALIGNANT [None]
